FAERS Safety Report 12971822 (Version 1)
Quarter: 2016Q4

REPORT INFORMATION
  Report Type: Spontaneous
  Country: US (occurrence: US)
  Receive Date: 20161124
  Receipt Date: 20161124
  Transmission Date: 20170207
  Serious: Yes (Other)
  Sender: FDA-Public Use
  Company Number: US-ROCHE-1856944

PATIENT
  Sex: Female

DRUGS (1)
  1. LUCENTIS [Suspect]
     Active Substance: RANIBIZUMAB
     Indication: EYE DISORDER
     Dosage: UNKNOWN
     Route: 065

REACTIONS (3)
  - Hypoaesthesia oral [Unknown]
  - Sensory disturbance [Unknown]
  - Nausea [Unknown]
